FAERS Safety Report 5326013-3 (Version None)
Quarter: 2007Q2

REPORT INFORMATION
  Report Type: 
  Country: None (occurrence: None)
  Receive Date: 20070516
  Receipt Date: 20070504
  Transmission Date: 20071010
  Serious: Yes (Other)
  Sender: FDA-Public Use
  Company Number: BE-JNJFOC-20070501747

PATIENT
  Age: 47 Year
  Sex: Female

DRUGS (2)
  1. INFLIXIMAB [Suspect]
     Indication: INFLAMMATORY BOWEL DISEASE
     Dosage: RECEIVED 4 INFUSIONS ON UNKNOWN DATES.
     Route: 042
  2. AZATHIOPRINE [Concomitant]

REACTIONS (1)
  - CERVIX CARCINOMA [None]
